FAERS Safety Report 6276186-3 (Version None)
Quarter: 2009Q3

REPORT INFORMATION
  Report Type: 
  Country: None (occurrence: None)
  Receive Date: 20090722
  Receipt Date: 20090630
  Transmission Date: 20100115
  Serious: Yes (Other)
  Sender: FDA-Public Use
  Company Number: JP-BRISTOL-MYERS SQUIBB COMPANY-14705693

PATIENT

DRUGS (1)
  1. CARBIDOPA + LEVODOPA [Suspect]
     Dosage: DF = TABS
     Route: 048

REACTIONS (2)
  - CATECHOLAMINES URINE [None]
  - PHAEOCHROMOCYTOMA [None]
